FAERS Safety Report 6186271-2 (Version None)
Quarter: 2009Q2

REPORT INFORMATION
  Report Type: 
  Country: None (occurrence: None)
  Receive Date: 20090511
  Receipt Date: 20090430
  Transmission Date: 20091009
  Serious: Yes (Other)
  Sender: FDA-Public Use
  Company Number: BR-JNJFOC-20090500098

PATIENT
  Age: 55 Year
  Sex: Female
  Weight: 60 kg

DRUGS (3)
  1. ACETAMINOPHEN W/ CODEINE [Suspect]
     Indication: TENDONITIS
  2. ACETAMINOPHEN W/ CODEINE [Suspect]
     Indication: PAIN
  3. SIMVASTATIN [Concomitant]
     Indication: BLOOD CHOLESTEROL INCREASED

REACTIONS (4)
  - COLD SWEAT [None]
  - DIZZINESS [None]
  - RESPIRATORY RATE DECREASED [None]
  - SYNCOPE [None]
